FAERS Safety Report 5898654-6 (Version None)
Quarter: 2008Q3

REPORT INFORMATION
  Report Type: 
  Country: None (occurrence: None)
  Receive Date: 20080925
  Receipt Date: 20080403
  Transmission Date: 20090109
  Serious: No
  Sender: FDA-Public Use
  Company Number: A0716186A

PATIENT
  Age: 51 Year
  Sex: Female
  Weight: 119.1 kg

DRUGS (7)
  1. WELLBUTRIN XL [Suspect]
     Indication: DEPRESSION
     Dosage: 300MG PER DAY
     Route: 048
     Dates: start: 20080311
  2. ASPIRIN [Concomitant]
  3. CRESTOR [Concomitant]
  4. FLONASE [Concomitant]
  5. HYDROCHLOROTHIAZIDE [Concomitant]
  6. VALTREX [Concomitant]
  7. ZYRTEC [Concomitant]

REACTIONS (1)
  - TINNITUS [None]
